FAERS Safety Report 8729461 (Version 3)
Quarter: 2012Q4

REPORT INFORMATION
  Report Type: 
  Country: JP (occurrence: JP)
  Receive Date: 20120817
  Receipt Date: 20121003
  Transmission Date: 20130627
  Serious: Yes (Other)
  Sender: FDA-Public Use
  Company Number: JP-AMGEN-JPNSP2012051840

PATIENT
  Sex: Female

DRUGS (3)
  1. ENBREL [Suspect]
     Indication: PRODUCT USED FOR UNKNOWN INDICATION
     Dosage: 50 mg, UNK
  2. RHEUMATREX                         /00113801/ [Suspect]
     Dosage: UNK
  3. METHOTREXATE SODIUM [Suspect]
     Dosage: UNK

REACTIONS (1)
  - Interstitial lung disease [Unknown]
